FAERS Safety Report 5308098-3 (Version None)
Quarter: 2007Q2

REPORT INFORMATION
  Report Type: 
  Country: None (occurrence: None)
  Receive Date: 20070426
  Receipt Date: 20070416
  Transmission Date: 20071010
  Serious: Yes (Hospitalization, Other)
  Sender: FDA-Public Use
  Company Number: PHEH2006US14652

PATIENT
  Sex: Female

DRUGS (2)
  1. TEGRETOL [Suspect]
     Indication: AFFECTIVE DISORDER
     Dosage: 900 MG, QD
     Dates: start: 19960101
  2. TEGRETOL [Suspect]
     Dosage: 1800 MG, ONCE/SINGLE

REACTIONS (13)
  - ACCIDENTAL OVERDOSE [None]
  - ASTHENIA [None]
  - BALANCE DISORDER [None]
  - BLINDNESS UNILATERAL [None]
  - CARDIAC DISORDER [None]
  - DIZZINESS [None]
  - DYSPNOEA [None]
  - FATIGUE [None]
  - GASTRIC BYPASS [None]
  - GASTRIC ULCER [None]
  - NAUSEA [None]
  - VISION BLURRED [None]
  - VOMITING [None]
